FAERS Safety Report 7772328-9 (Version None)
Quarter: 2011Q3

REPORT INFORMATION
  Report Type: 
  Country: None (occurrence: None)
  Receive Date: 20110922
  Receipt Date: 20110418
  Transmission Date: 20111222
  Serious: Yes (Other)
  Sender: FDA-Public Use
  Company Number: US-ASTRAZENECA-2007UW01954

PATIENT
  Age: 16035 Day
  Sex: Male
  Weight: 119.3 kg

DRUGS (11)
  1. WELLBUTRIN XL [Concomitant]
     Dosage: 150 MG-300MG
     Dates: start: 20040609
  2. TRAZODONE HYDROCHLORIDE [Concomitant]
  3. TRICOR [Concomitant]
     Dates: start: 20060504
  4. ZOLOFT [Concomitant]
     Dates: start: 19960101
  5. CLONAZEPAM [Concomitant]
     Dosage: 0.5 MG 1 HS, PRN PER DAY
     Dates: start: 20050113, end: 20050127
  6. SEROQUEL [Suspect]
     Indication: SLEEP DISORDER
     Dosage: 25 MG ONE TO TWO AT BEDTIME
     Route: 048
     Dates: start: 20050127, end: 20060404
  7. SEROQUEL [Suspect]
     Indication: DEPRESSION
     Dosage: 25 MG ONE TO TWO AT BEDTIME
     Route: 048
     Dates: start: 20050127, end: 20060404
  8. CELEXA [Concomitant]
     Dosage: 20 MG-40 MG
     Dates: start: 20021028
  9. ALBUTEROL [Concomitant]
  10. LEVITRA [Concomitant]
  11. CELEBREX [Concomitant]
     Route: 048
     Dates: start: 20060504

REACTIONS (11)
  - SUICIDAL IDEATION [None]
  - HYPERLIPIDAEMIA [None]
  - OBESITY [None]
  - DYSPNOEA [None]
  - TYPE 2 DIABETES MELLITUS [None]
  - DYSLIPIDAEMIA [None]
  - SEXUAL DYSFUNCTION [None]
  - BLOOD TRIGLYCERIDES INCREASED [None]
  - CHRONIC OBSTRUCTIVE PULMONARY DISEASE [None]
  - ERECTILE DYSFUNCTION [None]
  - BLOOD CHOLESTEROL INCREASED [None]
